FAERS Safety Report 10421436 (Version 1)
Quarter: 2014Q3

REPORT INFORMATION
  Report Type: Spontaneous
  Country: US (occurrence: US)
  Receive Date: 20140901
  Receipt Date: 20140901
  Transmission Date: 20150326
  Serious: Yes (Death, Hospitalization)
  Sender: FDA-Public Use
  Company Number: PHHY2014US105628

PATIENT
  Age: 69 Year
  Sex: Female

DRUGS (3)
  1. HEPARIN [Suspect]
     Active Substance: HEPARIN SODIUM
  2. CORTICOSTEROIDS [Concomitant]
     Active Substance: CORTICOSTEROID NOS
  3. CYCLOPHOSPHAMIDE. [Concomitant]
     Active Substance: CYCLOPHOSPHAMIDE

REACTIONS (7)
  - Subdural haemorrhage [Unknown]
  - Convulsion [Unknown]
  - Upper gastrointestinal haemorrhage [Unknown]
  - Sepsis [Fatal]
  - Haematochezia [Unknown]
  - No therapeutic response [Unknown]
  - Activated partial thromboplastin time prolonged [Unknown]
